FAERS Safety Report 14192262 (Version 2)
Quarter: 2017Q4

REPORT INFORMATION
  Report Type: Spontaneous
  Country: IT (occurrence: IT)
  Receive Date: 20171115
  Receipt Date: 20171121
  Transmission Date: 20180321
  Serious: Yes (Hospitalization, Other)
  Sender: FDA-Public Use
  Company Number: IT-PFIZER INC-2017486844

PATIENT
  Age: 59 Year
  Sex: Female

DRUGS (1)
  1. MEDROXYPROGESTERONE ACETATE. [Suspect]
     Active Substance: MEDROXYPROGESTERONE ACETATE
     Indication: LYMPHANGIOLEIOMYOMATOSIS
     Dosage: 500 MG, MONTHLY
     Route: 030
     Dates: start: 1998, end: 200406

REACTIONS (2)
  - Product use in unapproved indication [Unknown]
  - Meningioma [Recovering/Resolving]
